FAERS Safety Report 9751709 (Version 2)
Quarter: 2013Q4

REPORT INFORMATION
  Report Type: Report from Study
  Country: CL (occurrence: CL)
  Receive Date: 20131213
  Receipt Date: 20131213
  Transmission Date: 20140711
  Serious: Yes (Death, Hospitalization)
  Sender: FDA-Public Use
  Company Number: CL-ROCHE-1314209

PATIENT
  Age: 59 Year
  Sex: Female
  Weight: 62 kg

DRUGS (1)
  1. XELODA [Suspect]
     Indication: COLON CANCER
     Dosage: LAST TAKEN ON 03/DEC/2013
     Route: 048
     Dates: start: 20131127, end: 20131207

REACTIONS (2)
  - Dyspnoea [Fatal]
  - Constipation [Fatal]
